FAERS Safety Report 13361648 (Version 1)
Quarter: 2017Q1

REPORT INFORMATION
  Report Type: Report from Study
  Country: CN (occurrence: CN)
  Receive Date: 20170323
  Receipt Date: 20170323
  Transmission Date: 20170429
  Serious: Yes (Other)
  Sender: FDA-Public Use
  Company Number: CN-BION-006128

PATIENT

DRUGS (2)
  1. VALPROIC ACID UNKNOWN PRODUCT [Suspect]
     Active Substance: VALPROIC ACID
     Indication: STATUS EPILEPTICUS
     Route: 064
  2. LEVETIRACETAM. [Suspect]
     Active Substance: LEVETIRACETAM
     Indication: EPILEPSY
     Route: 064

REACTIONS (7)
  - Apathy [Unknown]
  - Cyanosis [Unknown]
  - Hypotonia neonatal [Unknown]
  - Heart rate decreased [Unknown]
  - Foetal exposure during pregnancy [Unknown]
  - Hypopnoea [Unknown]
  - Apgar score low [Recovered/Resolved]
